FAERS Safety Report 21055187 (Version 2)
Quarter: 2022Q4

REPORT INFORMATION
  Report Type: Report from Study
  Country: US (occurrence: US)
  Receive Date: 20220708
  Receipt Date: 20221107
  Transmission Date: 20230112
  Serious: Yes (Death, Life-Threatening, Hospitalization, Other)
  Sender: FDA-Public Use
  Company Number: US-BRISTOL-MYERS SQUIBB COMPANY-2022-059703

PATIENT
  Age: 54 Year
  Sex: Male
  Weight: 94.3 kg

DRUGS (4)
  1. NIVOLUMAB [Suspect]
     Active Substance: NIVOLUMAB
     Indication: Oesophageal adenocarcinoma
     Route: 042
     Dates: start: 20220307, end: 20220531
  2. RAMUCIRUMAB [Suspect]
     Active Substance: RAMUCIRUMAB
     Indication: Oesophageal adenocarcinoma
     Route: 048
  3. RUCAPARIB [Suspect]
     Active Substance: RUCAPARIB
     Indication: Oesophageal adenocarcinoma
     Route: 048
     Dates: start: 20220307, end: 20220526
  4. HEPARIN [Suspect]
     Active Substance: HEPARIN SODIUM
     Indication: Deep vein thrombosis
     Route: 042
     Dates: start: 202206

REACTIONS (7)
  - Aspiration [Fatal]
  - Pneumonia escherichia [Fatal]
  - Dysphagia [Fatal]
  - Deep vein thrombosis [Unknown]
  - Haematemesis [Unknown]
  - Streptococcal bacteraemia [Unknown]
  - Acute myocardial infarction [Unknown]

NARRATIVE: CASE EVENT DATE: 20220601
